FAERS Safety Report 23054767 (Version 1)
Quarter: 2023Q4

REPORT INFORMATION
  Report Type: Spontaneous
  Country: US (occurrence: US)
  Receive Date: 20231011
  Receipt Date: 20231011
  Transmission Date: 20240110
  Serious: Yes (Death, Hospitalization)
  Sender: FDA-Public Use
  Company Number: US-MYLANLABS-2023M1106591

PATIENT
  Age: 53 Year
  Sex: Female

DRUGS (1)
  1. METHIMAZOLE [Suspect]
     Active Substance: METHIMAZOLE
     Indication: Hyperthyroidism
     Dosage: UNK
     Route: 065

REACTIONS (7)
  - Pseudomonas infection [Fatal]
  - Multiple organ dysfunction syndrome [Fatal]
  - Leukopenia [Fatal]
  - Ecthyma [Fatal]
  - Shock [Fatal]
  - Disseminated intravascular coagulation [Fatal]
  - Septic shock [Fatal]
